FAERS Safety Report 20614250 (Version 3)
Quarter: 2022Q1

REPORT INFORMATION
  Report Type: Report from Study
  Country: ES (occurrence: ES)
  Receive Date: 20220320
  Receipt Date: 20220331
  Transmission Date: 20220423
  Serious: Yes (Hospitalization)
  Sender: FDA-Public Use
  Company Number: ES-ABBVIE-22K-144-4319609-00

PATIENT
  Age: 66 Year
  Sex: Male
  Weight: 79 kg

DRUGS (2)
  1. CARBIDOPA\LEVODOPA [Suspect]
     Active Substance: CARBIDOPA\LEVODOPA
     Indication: Parkinson^s disease
     Dosage: MORNING DOSE 11 ML, CONTINUOUS 3.8 ML/H, EXTRA 2 ML
     Route: 050
     Dates: start: 20181116
  2. CARBIDOPA\LEVODOPA [Suspect]
     Active Substance: CARBIDOPA\LEVODOPA
     Route: 050

REACTIONS (4)
  - Respiratory tract infection [Recovered/Resolved]
  - Bronchial hyperreactivity [Recovered/Resolved]
  - Stoma site discharge [Unknown]
  - Stoma site infection [Unknown]

NARRATIVE: CASE EVENT DATE: 20220311
